FAERS Safety Report 25622792 (Version 1)
Quarter: 2025Q3

REPORT INFORMATION
  Report Type: Spontaneous
  Country: US (occurrence: US)
  Receive Date: 20250730
  Receipt Date: 20250730
  Transmission Date: 20251020
  Serious: No
  Sender: BLUEPRINT MEDICINES
  Company Number: US-Blueprint Medicines Corporation-2025-AER-01601

PATIENT
  Age: 53 Year
  Sex: Female

DRUGS (1)
  1. AYVAKIT [Suspect]
     Active Substance: AVAPRITINIB
     Indication: Mastocytoma
     Route: 065

REACTIONS (8)
  - Thinking abnormal [Unknown]
  - Thought blocking [Unknown]
  - Communication disorder [Unknown]
  - Anxiety [Unknown]
  - Depression [Unknown]
  - Myalgia [Unknown]
  - Pain [Unknown]
  - Arthralgia [Unknown]
